FAERS Safety Report 16056698 (Version 1)
Quarter: 2019Q1

REPORT INFORMATION
  Report Type: Spontaneous
  Country: US (occurrence: US)
  Receive Date: 20190208
  Receipt Date: 20190208
  Transmission Date: 20190418
  Serious: Yes (Other)
  Sender: FDA-Public Use
  Company Number: None

PATIENT
  Age: 70 Year
  Sex: Female
  Weight: 53.07 kg

DRUGS (9)
  1. PROLIA [Suspect]
     Active Substance: DENOSUMAB
     Indication: OSTEOPOROSIS
     Dosage: QUANTITY:60 MG MILLIGRAM(S);OTHER FREQUENCY:2 EVERY 6 MONTHS;OTHER ROUTE:INJECTION?
     Dates: start: 201806, end: 20181228
  2. CRANBERRY. [Concomitant]
     Active Substance: CRANBERRY
  3. VITAMIN D [Concomitant]
     Active Substance: CHOLECALCIFEROL
  4. CYMBALTA [Concomitant]
     Active Substance: DULOXETINE HYDROCHLORIDE
  5. DITROPAN [Concomitant]
     Active Substance: OXYBUTYNIN CHLORIDE
  6. LYRICA [Concomitant]
     Active Substance: PREGABALIN
  7. PRILOSEC [Concomitant]
     Active Substance: OMEPRAZOLE MAGNESIUM
  8. CELEBREX [Concomitant]
     Active Substance: CELECOXIB
  9. BIOTIN [Concomitant]
     Active Substance: BIOTIN

REACTIONS (6)
  - Loss of personal independence in daily activities [None]
  - Pain in extremity [None]
  - Pain [None]
  - Muscular weakness [None]
  - Musculoskeletal stiffness [None]
  - Asthenia [None]

NARRATIVE: CASE EVENT DATE: 20181228
